FAERS Safety Report 25103375 (Version 1)
Quarter: 2025Q1

REPORT INFORMATION
  Report Type: Spontaneous
  Country: US (occurrence: US)
  Receive Date: 20250321
  Receipt Date: 20250321
  Transmission Date: 20250409
  Serious: Yes (Other)
  Sender: SANOFI AVENTIS
  Company Number: US-SANOFI-02453574

PATIENT
  Age: 81 Year
  Sex: Male

DRUGS (1)
  1. SOLIQUA 100/33 [Suspect]
     Active Substance: INSULIN GLARGINE\LIXISENATIDE
     Indication: Diabetes mellitus
     Dosage: 19 IU, QD; DRUG TREATMENT DURATION:USED ONCE ^+^ NEW PEN/9 MONTHS
     Dates: start: 202406

REACTIONS (1)
  - Dementia [Unknown]
